FAERS Safety Report 5703923-6 (Version None)
Quarter: 2008Q2

REPORT INFORMATION
  Report Type: 
  Country: None (occurrence: None)
  Receive Date: 20080409
  Receipt Date: 20080325
  Transmission Date: 20081010
  Serious: Yes (Hospitalization)
  Sender: FDA-Public Use
  Company Number: 2008US000007

PATIENT
  Age: 48 Year
  Sex: Male
  Weight: 90.7 kg

DRUGS (13)
  1. AMEVIVE [Suspect]
     Indication: PSORIASIS
     Dosage: 15 MG, WEEKLY, INTRAMUSCULAR
     Route: 030
     Dates: start: 20030707, end: 20030922
  2. LIPITOR [Concomitant]
  3. NAPROXEN SODIUM [Concomitant]
  4. COZAAR [Concomitant]
  5. ZETIA [Concomitant]
  6. CYTOTEC [Concomitant]
  7. FOLIC ACID [Concomitant]
  8. TOPROL (METOPROLOL SUCCINATE) , 100 MG [Concomitant]
  9. ASPIRIN [Concomitant]
  10. METHOTREXATE [Concomitant]
  11. FISH OIL (FISH OIL) [Concomitant]
  12. MULTIVITAMIN [Concomitant]
  13. HYZAAR [Concomitant]

REACTIONS (15)
  - BACK PAIN [None]
  - BLOOD BILIRUBIN INCREASED [None]
  - BLOOD CREATININE INCREASED [None]
  - BLOOD GLUCOSE INCREASED [None]
  - ELECTROCARDIOGRAM ABNORMAL [None]
  - GRANULOCYTE COUNT INCREASED [None]
  - LEFT VENTRICULAR HYPERTROPHY [None]
  - LIPASE DECREASED [None]
  - LYMPHOCYTE PERCENTAGE DECREASED [None]
  - OEDEMA PERIPHERAL [None]
  - PAIN IN JAW [None]
  - PITTING OEDEMA [None]
  - PYREXIA [None]
  - VENTRICULAR EXTRASYSTOLES [None]
  - WHITE BLOOD CELL COUNT INCREASED [None]
